FAERS Safety Report 8559803-4 (Version None)
Quarter: 2012Q3

REPORT INFORMATION
  Report Type: 
  Country: None (occurrence: None)
  Receive Date: 20120802
  Receipt Date: 20120730
  Transmission Date: 20120928
  Serious: No
  Sender: FDA-Public Use
  Company Number: US-PFIZER INC-2012184651

PATIENT
  Sex: Female
  Weight: 58.967 kg

DRUGS (1)
  1. SUTENT [Suspect]
     Indication: RENAL CANCER STAGE IV
     Dosage: 50 MG, FIRST 42 DAY CYCLE
     Dates: start: 20120725

REACTIONS (1)
  - TONGUE DISORDER [None]
